FAERS Safety Report 8098606-4 (Version None)
Quarter: 2012Q1

REPORT INFORMATION
  Report Type: 
  Country: None (occurrence: None)
  Receive Date: 20120129
  Receipt Date: 20111024
  Transmission Date: 20120608
  Serious: No
  Sender: FDA-Public Use
  Company Number: US-ABBOTT-11P-163-0867565-00

PATIENT
  Age: 64 Year
  Sex: Male

DRUGS (3)
  1. HUMIRA [Suspect]
     Indication: PSORIASIS
  2. BYSTOLIC [Concomitant]
     Indication: BLOOD PRESSURE
  3. VYTORIN [Concomitant]
     Indication: BLOOD PRESSURE

REACTIONS (2)
  - PRURITUS [None]
  - SKIN EXFOLIATION [None]
